FAERS Safety Report 21296312 (Version 1)
Quarter: 2022Q3

REPORT INFORMATION
  Report Type: Spontaneous
  Country: US (occurrence: US)
  Receive Date: 20220906
  Receipt Date: 20220906
  Transmission Date: 20221026
  Serious: Yes (Other)
  Sender: FDA-Public Use
  Company Number: US-STRIDES ARCOLAB LIMITED-2022SP011133

PATIENT
  Sex: Female

DRUGS (2)
  1. PHENOBARBITAL [Interacting]
     Active Substance: PHENOBARBITAL
     Indication: Product used for unknown indication
     Dosage: UNK
     Route: 065
  2. TIVICAY [Interacting]
     Active Substance: DOLUTEGRAVIR SODIUM
     Indication: Perinatal HIV infection
     Dosage: 50 MILLIGRAM, BID (CRUSHED TABLET ADMINISTERED VIA HER GASTROSTOMY TUBE TWO TIMES PER DAY INSTEAD OF

REACTIONS (2)
  - Antiviral drug level below therapeutic [Unknown]
  - Drug interaction [Unknown]
